FAERS Safety Report 25249787 (Version 2)
Quarter: 2025Q2

REPORT INFORMATION
  Report Type: Spontaneous
  Country: FR (occurrence: FR)
  Receive Date: 20250429
  Receipt Date: 20250506
  Transmission Date: 20250717
  Serious: Yes (Life-Threatening, Hospitalization)
  Sender: MYLAN
  Company Number: None

PATIENT
  Age: 31 Year
  Sex: Male
  Weight: 68 kg

DRUGS (4)
  1. EPINEPHRINE [Suspect]
     Active Substance: EPINEPHRINE
     Indication: Rhinoplasty
     Dates: start: 20240529, end: 20240529
  2. EPINEPHRINE [Suspect]
     Active Substance: EPINEPHRINE
     Route: 065
     Dates: start: 20240529, end: 20240529
  3. EPINEPHRINE [Suspect]
     Active Substance: EPINEPHRINE
     Route: 065
     Dates: start: 20240529, end: 20240529
  4. EPINEPHRINE [Suspect]
     Active Substance: EPINEPHRINE
     Dates: start: 20240529, end: 20240529

REACTIONS (1)
  - Cardiogenic shock [Recovered/Resolved]

NARRATIVE: CASE EVENT DATE: 20240529
